FAERS Safety Report 16283362 (Version 2)
Quarter: 2019Q2

REPORT INFORMATION
  Report Type: Spontaneous
  Country: GB (occurrence: GB)
  Receive Date: 20190507
  Receipt Date: 20190620
  Transmission Date: 20190711
  Serious: Yes (Hospitalization)
  Sender: FDA-Public Use
  Company Number: GB-ELI_LILLY_AND_COMPANY-GB201905000923

PATIENT
  Age: 30 Year
  Sex: Male
  Weight: 62 kg

DRUGS (1)
  1. LIPROLOG LISPRO [Suspect]
     Active Substance: INSULIN LISPRO
     Indication: TYPE 1 DIABETES MELLITUS
     Dosage: 20 U, TID
     Route: 058
     Dates: end: 20190430

REACTIONS (3)
  - Blood glucose increased [Unknown]
  - Diabetic ketoacidosis [Recovered/Resolved]
  - Malaise [Unknown]
